FAERS Safety Report 16758415 (Version 2)
Quarter: 2019Q3

REPORT INFORMATION
  Report Type: Spontaneous
  Country: IT (occurrence: IT)
  Receive Date: 20190830
  Receipt Date: 20190906
  Transmission Date: 20191005
  Serious: Yes (Other)
  Sender: FDA-Public Use
  Company Number: IT-ROCHE-2393097

PATIENT
  Age: 47 Year
  Sex: Female

DRUGS (1)
  1. XOLAIR [Suspect]
     Active Substance: OMALIZUMAB
     Indication: PRODUCT USED FOR UNKNOWN INDICATION
     Dosage: UNK
     Route: 065
     Dates: start: 2015

REACTIONS (12)
  - Onychoclasis [Unknown]
  - Drug intolerance [Unknown]
  - Herpes virus infection [Unknown]
  - Ill-defined disorder [Unknown]
  - Abdominal discomfort [Unknown]
  - Localised infection [Unknown]
  - Dyshidrotic eczema [Unknown]
  - Arthritis [Unknown]
  - Candida infection [Unknown]
  - Alopecia [Unknown]
  - Adrenal insufficiency [Unknown]
  - Hyperhidrosis [Unknown]
